FAERS Safety Report 19895064 (Version 4)
Quarter: 2021Q4

REPORT INFORMATION
  Report Type: Spontaneous
  Country: ES (occurrence: ES)
  Receive Date: 20210929
  Receipt Date: 20211208
  Transmission Date: 20220303
  Serious: Yes (Hospitalization, Other)
  Sender: FDA-Public Use
  Company Number: ES-SA-2020SA032378

PATIENT
  Sex: Male
  Weight: 68 kg

DRUGS (15)
  1. ASPIRIN [Suspect]
     Active Substance: ASPIRIN
     Indication: Product used for unknown indication
     Dosage: UNK
     Route: 048
  2. FUROSEMIDE [Suspect]
     Active Substance: FUROSEMIDE
     Indication: Product used for unknown indication
     Dosage: UNK
     Route: 048
  3. INSULIN GLARGINE [Suspect]
     Active Substance: INSULIN GLARGINE
     Indication: Type 2 diabetes mellitus
     Dosage: UNK
     Route: 058
  4. INSULIN GLARGINE [Suspect]
     Active Substance: INSULIN GLARGINE
     Dosage: 26 INTERNATIONAL UNIT (DOSE REDUCED TO 26 IU)
     Route: 058
  5. INSULIN GLARGINE [Suspect]
     Active Substance: INSULIN GLARGINE
     Dosage: 28 INTERNATIONAL UNIT
     Route: 058
     Dates: start: 20210803, end: 20210803
  6. INSULIN GLARGINE [Suspect]
     Active Substance: INSULIN GLARGINE
     Dosage: 30 INTERNATIONAL UNIT
     Route: 058
     Dates: start: 20210804, end: 20210804
  7. INSULIN GLARGINE [Suspect]
     Active Substance: INSULIN GLARGINE
     Dosage: 32 INTERNATIONAL UNIT
     Route: 058
     Dates: start: 20210805
  8. OLMESARTAN MEDOXOMIL [Suspect]
     Active Substance: OLMESARTAN MEDOXOMIL
     Indication: Product used for unknown indication
     Dosage: UNK
     Route: 048
  9. LANREOTIDE ACETATE [Suspect]
     Active Substance: LANREOTIDE ACETATE
     Indication: Hepatic neoplasm
     Dosage: UNK (1 MONTH, QM)
     Route: 065
  10. LANREOTIDE ACETATE [Suspect]
     Active Substance: LANREOTIDE ACETATE
     Indication: Benign pancreatic neoplasm
     Dosage: UNK (2 EVERY 28 DAYS)
     Route: 065
  11. REPAGLINIDE [Concomitant]
     Active Substance: REPAGLINIDE
     Indication: Type 2 diabetes mellitus
     Dosage: 1 DOSAGE FORM, 3 TIMES A DAY (1 DF, Q8H)
     Route: 048
  12. LOSARTAN [Concomitant]
     Active Substance: LOSARTAN
     Indication: Product used for unknown indication
     Dosage: UNK
     Route: 048
  13. HUMALOG [Concomitant]
     Active Substance: INSULIN LISPRO
     Indication: Type 2 diabetes mellitus
     Dosage: UNK (IF GLYCEMIA GREATER THAN 250 MG/DL)
     Route: 058
  14. HUMALOG [Concomitant]
     Active Substance: INSULIN LISPRO
     Indication: Diabetes mellitus inadequate control
  15. CAPOTEN [Concomitant]
     Active Substance: CAPTOPRIL
     Indication: Blood pressure abnormal
     Dosage: UNK
     Route: 065

REACTIONS (27)
  - Blood sodium decreased [Unknown]
  - Blood pressure abnormal [Not Recovered/Not Resolved]
  - Hypoglycaemia [Recovered/Resolved]
  - Blood disorder [Not Recovered/Not Resolved]
  - Diabetes mellitus inadequate control [Recovering/Resolving]
  - Diabetes mellitus inadequate control [Recovering/Resolving]
  - Asthenia [Recovering/Resolving]
  - Hepatic cyst [Not Recovered/Not Resolved]
  - Intentional product misuse [Unknown]
  - Blood glucose fluctuation [Unknown]
  - Blood glucose abnormal [Recovering/Resolving]
  - Abdominal distension [Not Recovered/Not Resolved]
  - Urine analysis abnormal [Unknown]
  - Pancreatic cyst [Not Recovered/Not Resolved]
  - Cyanosis [Recovered/Resolved]
  - Benign pancreatic neoplasm [Not Recovered/Not Resolved]
  - Hepatic neoplasm [Not Recovered/Not Resolved]
  - Loss of consciousness [Recovered/Resolved]
  - Weight decreased [Unknown]
  - Weight increased [Unknown]
  - Fatigue [Unknown]
  - Nocturia [Unknown]
  - Renal disorder [Not Recovered/Not Resolved]
  - Condition aggravated [Not Recovered/Not Resolved]
  - Visual impairment [Unknown]
  - Fluid retention [Unknown]
  - Hypertension [Unknown]

NARRATIVE: CASE EVENT DATE: 20200130
